FAERS Safety Report 5721020-0 (Version None)
Quarter: 2008Q2

REPORT INFORMATION
  Report Type: 
  Country: None (occurrence: None)
  Receive Date: 20080424
  Receipt Date: 20080410
  Transmission Date: 20081010
  Serious: No
  Sender: FDA-Public Use
  Company Number: 002#2#2008-00266

PATIENT
  Age: 61 Year
  Sex: Female
  Weight: 81.6475 kg

DRUGS (1)
  1. NEUPRO [Suspect]
     Indication: PARKINSON'S DISEASE
     Dosage: 2 MG/24H, 1 IN 1 D, TRANSDERMAL, 4 MG/24H, 1 IN 1 D, TRANSDERMAL, 6 MG/24H, 1 IN 1 D, TRANSDERMAL,
     Route: 062
     Dates: start: 20071226

REACTIONS (2)
  - DRUG INEFFECTIVE [None]
  - FATIGUE [None]
